FAERS Safety Report 12875613 (Version 2)
Quarter: 2016Q4

REPORT INFORMATION
  Report Type: Spontaneous
  Country: DE (occurrence: DE)
  Receive Date: 20161024
  Receipt Date: 20161114
  Transmission Date: 20170207
  Serious: Yes (Hospitalization, Other)
  Sender: FDA-Public Use
  Company Number: DE-ROCHE-1845538

PATIENT
  Age: 73 Year
  Sex: Female
  Weight: 50 kg

DRUGS (5)
  1. GAZYVARO [Suspect]
     Active Substance: OBINUTUZUMAB
     Dosage: PAUSE ON DAY 15 OF THE CYCLE
     Route: 042
  2. GAZYVARO [Suspect]
     Active Substance: OBINUTUZUMAB
     Indication: NON-HODGKIN^S LYMPHOMA RECURRENT
     Dosage: ON DAY 1 OF THE CYCLE
     Route: 042
     Dates: start: 20161011
  3. GAZYVARO [Suspect]
     Active Substance: OBINUTUZUMAB
     Dosage: ON DAY 8 OF THE CYCLE
     Route: 042
  4. GAZYVARO [Suspect]
     Active Substance: OBINUTUZUMAB
     Dosage: ON DAY 2 OF THE CYCLE
     Route: 042
  5. BENDAMUSTINE [Suspect]
     Active Substance: BENDAMUSTINE
     Indication: NON-HODGKIN^S LYMPHOMA RECURRENT
     Route: 042
     Dates: start: 20161013, end: 20161014

REACTIONS (2)
  - Pancytopenia [Recovered/Resolved]
  - Cytopenia [Unknown]

NARRATIVE: CASE EVENT DATE: 20161011
